FAERS Safety Report 8894991 (Version 1)
Quarter: 2012Q4

REPORT INFORMATION
  Report Type: 
  Country: US (occurrence: US)
  Receive Date: 20121108
  Receipt Date: 20121108
  Transmission Date: 20130627
  Serious: No
  Sender: FDA-Public Use
  Company Number: US-ASTRAZENECA-2012SE80738

PATIENT
  Sex: Female

DRUGS (3)
  1. SEROQUEL [Suspect]
     Route: 048
     Dates: start: 2012, end: 2012
  2. KLONOPIN [Concomitant]
  3. UNKNOWN ANTIDEPRESSANT [Concomitant]

REACTIONS (3)
  - Choking [Recovered/Resolved]
  - Dysphagia [Recovered/Resolved]
  - Off label use [Unknown]
